FAERS Safety Report 17327523 (Version 2)
Quarter: 2020Q1

REPORT INFORMATION
  Report Type: Spontaneous
  Country: US (occurrence: US)
  Receive Date: 20200127
  Receipt Date: 20200304
  Transmission Date: 20200409
  Serious: Yes (Other)
  Sender: FDA-Public Use
  Company Number: US-AKORN PHARMACEUTICALS-2020AKN00091

PATIENT
  Age: 29 Year
  Sex: Female
  Weight: 64.85 kg

DRUGS (4)
  1. MYORISAN [Suspect]
     Active Substance: ISOTRETINOIN
     Indication: ACNE
     Dosage: 30 MG, 2X/DAY
     Dates: start: 20191216, end: 20200115
  2. MIRENA [Concomitant]
     Active Substance: LEVONORGESTREL
  3. BUPROPION. [Concomitant]
     Active Substance: BUPROPION
  4. CLINDAMYCIN TOPICAL + BENZOYL PEROXIDE [Concomitant]

REACTIONS (2)
  - Mood altered [Recovered/Resolved]
  - Constipation [Recovered/Resolved]

NARRATIVE: CASE EVENT DATE: 201912
